FAERS Safety Report 9237625 (Version 3)
Quarter: 2013Q3

REPORT INFORMATION
  Report Type: Spontaneous
  Country: DE (occurrence: DE)
  Receive Date: 20130418
  Receipt Date: 20130711
  Transmission Date: 20140515
  Serious: Yes (Hospitalization)
  Sender: FDA-Public Use
  Company Number: DE-BIOGENIDEC-2013BI005873

PATIENT
  Age: 28 Year
  Sex: Female
  Weight: 76 kg

DRUGS (2)
  1. AVONEX [Suspect]
     Indication: MULTIPLE SCLEROSIS
     Route: 030
     Dates: start: 20121101, end: 20130609
  2. PARACETAMOL [Concomitant]
     Indication: PRODUCT USED FOR UNKNOWN INDICATION
     Dates: start: 20121129

REACTIONS (3)
  - Premature rupture of membranes [Recovered/Resolved]
  - Vomiting in pregnancy [Recovered/Resolved]
  - Haemorrhage in pregnancy [Recovered/Resolved]
